FAERS Safety Report 12311339 (Version 3)
Quarter: 2017Q3

REPORT INFORMATION
  Report Type: Spontaneous
  Country: FR (occurrence: FR)
  Receive Date: 20160427
  Receipt Date: 20170705
  Transmission Date: 20171127
  Serious: Yes (Life-Threatening, Other)
  Sender: FDA-Public Use
  Company Number: FR-SEATTLE GENETICS-2016SGN00616

PATIENT
  Age: 44 Year
  Sex: Male

DRUGS (1)
  1. ADCETRIS [Suspect]
     Active Substance: BRENTUXIMAB VEDOTIN
     Indication: HODGKIN^S DISEASE
     Dosage: UNK
     Route: 042
     Dates: start: 20150416

REACTIONS (5)
  - Cytomegalovirus chorioretinitis [Recovering/Resolving]
  - Hepatitis [Unknown]
  - Pneumonia [Unknown]
  - Septic shock [Unknown]
  - Retinitis [Unknown]

NARRATIVE: CASE EVENT DATE: 20150707
